FAERS Safety Report 5444425-4 (Version None)
Quarter: 2007Q3

REPORT INFORMATION
  Report Type: 
  Country: None (occurrence: None)
  Receive Date: 20070831
  Receipt Date: 20070820
  Transmission Date: 20080115
  Serious: Yes (Hospitalization)
  Sender: FDA-Public Use
  Company Number: 160548ISR

PATIENT
  Age: 57 Year
  Sex: Male

DRUGS (12)
  1. BACTRIM [Suspect]
     Dosage: (2 IN 1 D); ORAL
     Route: 048
     Dates: start: 20070810
  2. DARIFENACIN [Concomitant]
  3. TOLTERODINE TARTRATE [Concomitant]
  4. BACLOFEN [Concomitant]
  5. DOCUSATE SODIUM [Concomitant]
  6. HYDROXYOCOBALAMIN [Concomitant]
  7. PANTOPRAZOLE SODIUM [Concomitant]
  8. DICLOFENAC [Concomitant]
  9. SALBUTAMOL [Concomitant]
  10. PAROXETINE [Concomitant]
  11. FUSIDIC ACID [Concomitant]
  12. TRIAMCINOLONE [Concomitant]

REACTIONS (1)
  - CEREBRAL INFARCTION [None]
